FAERS Safety Report 5121427-9 (Version None)
Quarter: 2006Q3

REPORT INFORMATION
  Report Type: 
  Country: None (occurrence: None)
  Receive Date: 20060929
  Receipt Date: 20060918
  Transmission Date: 20061208
  Serious: Yes (Hospitalization)
  Sender: FDA-Public Use
  Company Number: HQWYE914120SEP06

PATIENT
  Age: 15 Year
  Sex: Female
  Weight: 54.48 kg

DRUGS (1)
  1. EFFEXOR XR [Suspect]
     Indication: DEPRESSION
     Dosage: OVERDOSE AMOUNT UNKNOWN
     Dates: start: 20010101, end: 20010101

REACTIONS (17)
  - ABNORMAL DREAMS [None]
  - AMNESIA [None]
  - APHASIA [None]
  - BIPOLAR DISORDER [None]
  - DYSKINESIA [None]
  - EYE DISORDER [None]
  - EYE ROLLING [None]
  - FEELING ABNORMAL [None]
  - HEART RATE INCREASED [None]
  - INTENTIONAL OVERDOSE [None]
  - INTENTIONAL SELF-INJURY [None]
  - LACERATION [None]
  - MUSCLE RIGIDITY [None]
  - MYDRIASIS [None]
  - RENAL FAILURE [None]
  - SUICIDE ATTEMPT [None]
  - UNEVALUABLE EVENT [None]
